FAERS Safety Report 4695640-9 (Version None)
Quarter: 2005Q2

REPORT INFORMATION
  Report Type: 
  Country: None (occurrence: None)
  Receive Date: 20050617
  Receipt Date: 20050617
  Transmission Date: 20051028
  Serious: Yes (Other)
  Sender: FDA-Public Use
  Company Number: None

PATIENT
  Sex: Female

DRUGS (1)
  1. LISINOPRIL [Suspect]
     Dosage: 1 DAILY 10 MG
     Dates: start: 20010307, end: 20010904

REACTIONS (2)
  - FORMICATION [None]
  - PARAESTHESIA [None]
